FAERS Safety Report 12426242 (Version 1)
Quarter: 2016Q2

REPORT INFORMATION
  Report Type: Other
  Country: GB (occurrence: GB)
  Receive Date: 20160601
  Receipt Date: 20160601
  Transmission Date: 20160815
  Serious: Yes (Other)
  Sender: FDA-Public Use
  Company Number: GB-MYLANLABS-2016M1022044

PATIENT

DRUGS (2)
  1. ATORVASTATIN [Suspect]
     Active Substance: ATORVASTATIN
     Indication: BLOOD CHOLESTEROL INCREASED
     Dosage: 20 MG, UNK
     Route: 048
     Dates: start: 20150813, end: 20160511
  2. LEVOTHYROXINE. [Concomitant]
     Active Substance: LEVOTHYROXINE
     Indication: HYPOTHYROIDISM
     Dosage: UNK

REACTIONS (5)
  - Fatigue [Recovering/Resolving]
  - Tinnitus [Recovering/Resolving]
  - Dizziness [Recovered/Resolved]
  - Abnormal weight gain [Unknown]
  - Cluster headache [Recovering/Resolving]

NARRATIVE: CASE EVENT DATE: 20150818
